FAERS Safety Report 18859629 (Version 2)
Quarter: 2021Q1

REPORT INFORMATION
  Report Type: Spontaneous
  Country: US (occurrence: US)
  Receive Date: 20210208
  Receipt Date: 20210309
  Transmission Date: 20210420
  Serious: Yes (Other)
  Sender: FDA-Public Use
  Company Number: US-ALLERGAN-2104112US

PATIENT
  Sex: Male

DRUGS (3)
  1. VRAYLAR [Suspect]
     Active Substance: CARIPRAZINE
     Indication: BIPOLAR DISORDER
     Dosage: 1.5 MG, QD
     Route: 048
     Dates: start: 20200504, end: 20210125
  2. VRAYLAR [Suspect]
     Active Substance: CARIPRAZINE
     Indication: ATTENTION DEFICIT HYPERACTIVITY DISORDER
  3. VYVANSE [Concomitant]
     Active Substance: LISDEXAMFETAMINE DIMESYLATE
     Dosage: 50 MG PLUS 70 MG ORALLY ONCE A DAY
     Route: 048

REACTIONS (3)
  - Tooth fracture [Recovered/Resolved]
  - Tooth loss [Recovered/Resolved]
  - Off label use [Unknown]
